FAERS Safety Report 13577944 (Version 1)
Quarter: 2017Q2

REPORT INFORMATION
  Report Type: Spontaneous
  Country: FR (occurrence: FR)
  Receive Date: 20170524
  Receipt Date: 20170524
  Transmission Date: 20170830
  Serious: Yes (Other)
  Sender: FDA-Public Use
  Company Number: FR-BRISTOL-MYERS SQUIBB COMPANY-BMS-2017-042292

PATIENT
  Age: 62 Year
  Sex: Male

DRUGS (4)
  1. ETOPOPHOS [Suspect]
     Active Substance: ETOPOSIDE PHOSPHATE
     Indication: ANGIOIMMUNOBLASTIC T-CELL LYMPHOMA
     Dosage: 187 MG, BID
     Route: 042
     Dates: start: 20160110
  2. CYTARABINE KABI [Suspect]
     Active Substance: CYTARABINE
     Indication: ANGIOIMMUNOBLASTIC T-CELL LYMPHOMA
     Dosage: 375 MG, BID
     Route: 042
     Dates: start: 20160110
  3. ALKERAN [Suspect]
     Active Substance: MELPHALAN
     Indication: ANGIOIMMUNOBLASTIC T-CELL LYMPHOMA
     Dosage: 260 MG, SINGLE INTAKE
     Route: 042
     Dates: start: 20160114
  4. BICNU [Suspect]
     Active Substance: CARMUSTINE
     Indication: ANGIOIMMUNOBLASTIC T-CELL LYMPHOMA
     Dosage: 560 MG, SINGLE INTAKE
     Route: 042
     Dates: start: 20160109

REACTIONS (6)
  - Agranulocytosis [Recovered/Resolved]
  - Diarrhoea [Unknown]
  - Transfusion [Unknown]
  - Mucosal inflammation [Unknown]
  - Capnocytophaga infection [Recovered/Resolved]
  - Transplant [Unknown]

NARRATIVE: CASE EVENT DATE: 20160115
